FAERS Safety Report 8131240-6 (Version None)
Quarter: 2012Q1

REPORT INFORMATION
  Report Type: 
  Country: None (occurrence: None)
  Receive Date: 20120213
  Receipt Date: 20120209
  Transmission Date: 20120608
  Serious: Yes (Hospitalization, Other)
  Sender: FDA-Public Use
  Company Number: DE-BAYER-2012-007665

PATIENT
  Age: 55 Year
  Sex: Male

DRUGS (5)
  1. RESMINOSTAT [Suspect]
     Indication: HEPATIC NEOPLASM MALIGNANT
     Dosage: DAILY DOSE 400 MG
     Route: 048
     Dates: start: 20111028, end: 20111110
  2. TRIAMTEREN [Concomitant]
     Dosage: UNK
     Dates: end: 20111101
  3. THIAZIDES [Concomitant]
     Dosage: UNK
     Dates: end: 20111101
  4. SORAFENIB (RAF KINASE INHIBITOR) [Suspect]
     Indication: HEPATIC NEOPLASM MALIGNANT
     Dosage: DAILY DOSE 400 MG
     Route: 048
     Dates: start: 20111028, end: 20111110
  5. DYTIDE [Concomitant]
     Dosage: UNK
     Dates: start: 20111101, end: 20111124

REACTIONS (7)
  - HYPERKALAEMIA [None]
  - C-REACTIVE PROTEIN INCREASED [None]
  - URINARY TRACT INFECTION [None]
  - THROMBOCYTOSIS [None]
  - RENAL FAILURE ACUTE [None]
  - LEUKOCYTOSIS [None]
  - BLOOD CREATININE INCREASED [None]
